FAERS Safety Report 9530852 (Version 1)
Quarter: 2013Q1

REPORT INFORMATION
  Report Type: Spontaneous
  Country: US (occurrence: None)
  Receive Date: 20130315
  Receipt Date: 20130315
  Transmission Date: 20140127
  Serious: No
  Sender: FDA-Public Use
  Company Number: US-JNJFOC-20120709979

PATIENT
  Age: 63 Year
  Sex: Male
  Weight: 62.5 kg

DRUGS (14)
  1. IBUPROFEN [Suspect]
     Indication: BACK PAIN
     Route: 048
     Dates: start: 200908
  2. PEGASYS [Suspect]
     Indication: CHRONIC HEPATITIS C
     Route: 058
     Dates: start: 20120618
  3. COPEGUS [Suspect]
     Indication: CHRONIC HEPATITIS C
     Route: 048
     Dates: start: 20120618, end: 20120704
  4. METFORMIN [Suspect]
     Indication: DIABETES MELLITUS
     Route: 048
     Dates: start: 201102
  5. VX-950 (TELAPREVIR) [Concomitant]
  6. KETOCONAZOLE (KETOCONAZOLE) [Concomitant]
  7. METHADONE (METHADONE) [Concomitant]
  8. DILAUDID (HYDROMORPHONE HYDROCHLORIDE) [Concomitant]
  9. ACETAMINOPHEN (PARACETAMOL) [Concomitant]
  10. MEGESTROL ACETATE (MEGESTROL ACETATE) [Concomitant]
  11. LACTULOSE (LACTULOSE) [Concomitant]
  12. SENNA ALEXANDRINA (SENNA ALEXANDRINA) [Concomitant]
  13. CYMBALTA (DULOXETINE HYDROCHLORIDE) [Concomitant]
  14. COMPAZINE (PROCHLORPERAZINE EDISYLATE) [Concomitant]

REACTIONS (1)
  - Renal failure [None]
